FAERS Safety Report 18433292 (Version 1)
Quarter: 2020Q4

REPORT INFORMATION
  Report Type: Spontaneous
  Country: DE (occurrence: DE)
  Receive Date: 20201027
  Receipt Date: 20201027
  Transmission Date: 20210114
  Serious: Yes (Other)
  Sender: FDA-Public Use
  Company Number: DE-TEVA-2020-DE-1841027

PATIENT
  Age: 31 Year
  Sex: Female

DRUGS (4)
  1. OLUMIANT [Suspect]
     Active Substance: BARICITINIB
     Dosage: 4MILLIGRAM
     Dates: start: 201801, end: 20180606
  2. OLUMIANT [Suspect]
     Active Substance: BARICITINIB
     Indication: RHEUMATOID ARTHRITIS
     Dosage: 4MILLIGRAM
     Dates: start: 201902, end: 20190501
  3. SULFASALAZINE DELAYED-RELEASE [Suspect]
     Active Substance: SULFASALAZINE
     Indication: RHEUMATOID ARTHRITIS
     Dosage: 500 MG (INCREASED TO 2-0-2)
     Dates: start: 20180808, end: 20190214
  4. LEFLUNOMIDE. [Suspect]
     Active Substance: LEFLUNOMIDE
     Indication: RHEUMATOID ARTHRITIS
     Dosage: WASHED OUT IN JUN-2018 DUE TO THE WOMAN^S PREGNANCY:UNIT DOSE:20MILLIGRAM
     Dates: start: 201701, end: 201801

REACTIONS (5)
  - Perinatal depression [Unknown]
  - Gestational diabetes [Recovered/Resolved]
  - Maternal exposure before pregnancy [Unknown]
  - Maternal exposure during pregnancy [Unknown]
  - Drug ineffective [Unknown]

NARRATIVE: CASE EVENT DATE: 2018
